FAERS Safety Report 8148356-0 (Version None)
Quarter: 2012Q1

REPORT INFORMATION
  Report Type: 
  Country: None (occurrence: None)
  Receive Date: 20120218
  Receipt Date: 20110721
  Transmission Date: 20120608
  Serious: No
  Sender: FDA-Public Use
  Company Number: US-ALLERGAN-1107136US

PATIENT
  Age: 47 Year
  Sex: Female
  Weight: 61.224 kg

DRUGS (1)
  1. BOTOX COSMETIC [Suspect]
     Indication: SKIN WRINKLING
     Dosage: 4 UNITS, SINGLE
     Dates: start: 20110428, end: 20110428

REACTIONS (10)
  - BLOOD PRESSURE INCREASED [None]
  - CHEST DISCOMFORT [None]
  - THROAT TIGHTNESS [None]
  - DYSGEUSIA [None]
  - DRY MOUTH [None]
  - HYPOAESTHESIA [None]
  - SENSORY DISTURBANCE [None]
  - MUSCLE TIGHTNESS [None]
  - WRONG TECHNIQUE IN DRUG USAGE PROCESS [None]
  - PALPITATIONS [None]
